FAERS Safety Report 25188778 (Version 2)
Quarter: 2025Q2

REPORT INFORMATION
  Report Type: Spontaneous
  Country: NL (occurrence: NL)
  Receive Date: 20250411
  Receipt Date: 20250420
  Transmission Date: 20250717
  Serious: Yes (Death, Other)
  Sender: AUROBINDO
  Company Number: NL-LRB-01049068

PATIENT
  Age: 70 Year
  Sex: Male
  Weight: 80 kg

DRUGS (1)
  1. TERBINAFINE [Suspect]
     Active Substance: TERBINAFINE
     Indication: Fungal skin infection
     Dosage: 250 MILLIGRAM, ONCE A DAY [1 X PER DAG 1 STUK]
     Route: 048
     Dates: start: 20250225, end: 20250313

REACTIONS (2)
  - Acute generalised exanthematous pustulosis [Fatal]
  - Pneumonia [Fatal]
